FAERS Safety Report 6068700-8 (Version None)
Quarter: 2009Q1

REPORT INFORMATION
  Report Type: 
  Country: None (occurrence: None)
  Receive Date: 20090206
  Receipt Date: 20090128
  Transmission Date: 20090719
  Serious: Yes (Disabling)
  Sender: FDA-Public Use
  Company Number: B0556384A

PATIENT
  Age: 48 Year
  Sex: Male

DRUGS (2)
  1. COMBIVIR [Suspect]
     Indication: HIV INFECTION
     Dosage: 2UNIT PER DAY
     Route: 048
     Dates: end: 20040106
  2. VIRAMUNE [Concomitant]
     Indication: HIV INFECTION
     Dosage: 2UNIT PER DAY
     Route: 048

REACTIONS (3)
  - HYPERLIPASAEMIA [None]
  - MITOCHONDRIAL CYTOPATHY [None]
  - MYALGIA [None]
